FAERS Safety Report 24266865 (Version 4)
Quarter: 2025Q1

REPORT INFORMATION
  Report Type: Report from Study
  Country: ES (occurrence: ES)
  Receive Date: 20240830
  Receipt Date: 20250313
  Transmission Date: 20250408
  Serious: Yes (Hospitalization)
  Sender: ROCHE
  Company Number: ES-ROCHE-10000064651

PATIENT
  Age: 57 Year
  Sex: Female

DRUGS (23)
  1. OCRELIZUMAB [Suspect]
     Active Substance: OCRELIZUMAB
     Indication: Relapsing-remitting multiple sclerosis
     Dosage: TOTAL VOLUME PRIOR AE/SAE 500 ML?SUBSEQUENT DOSE RECEIVED ON 18-FEB-2020?START DATE OF MOST RECENT D
     Route: 042
     Dates: start: 20200204, end: 20200204
  2. OCRELIZUMAB [Suspect]
     Active Substance: OCRELIZUMAB
     Route: 042
     Dates: start: 20210217, end: 20210217
  3. OCRELIZUMAB [Suspect]
     Active Substance: OCRELIZUMAB
     Route: 042
     Dates: start: 20230830, end: 20230830
  4. OCRELIZUMAB [Suspect]
     Active Substance: OCRELIZUMAB
     Route: 042
     Dates: start: 20200218, end: 20200218
  5. OCRELIZUMAB [Suspect]
     Active Substance: OCRELIZUMAB
     Route: 042
     Dates: start: 20200820, end: 20200820
  6. OCRELIZUMAB [Suspect]
     Active Substance: OCRELIZUMAB
     Route: 042
     Dates: start: 20230223, end: 20230223
  7. OCRELIZUMAB [Suspect]
     Active Substance: OCRELIZUMAB
     Route: 042
     Dates: start: 20220211, end: 20220211
  8. OCRELIZUMAB [Suspect]
     Active Substance: OCRELIZUMAB
     Route: 042
     Dates: start: 20210809, end: 20210809
  9. OCRELIZUMAB [Suspect]
     Active Substance: OCRELIZUMAB
     Route: 042
     Dates: start: 20240229, end: 20240229
  10. OCRELIZUMAB [Suspect]
     Active Substance: OCRELIZUMAB
     Route: 042
     Dates: start: 20220812, end: 20220812
  11. ALPRAZOLAM [Concomitant]
     Active Substance: ALPRAZOLAM
     Route: 048
  12. PREGABALIN [Concomitant]
     Active Substance: PREGABALIN
     Dosage: MS SYMPTOMATIC TREATMENTS
     Route: 048
     Dates: start: 20160204
  13. PREGABALIN [Concomitant]
     Active Substance: PREGABALIN
     Dosage: MS SYMPTOMATIC TREATMENTS
     Route: 048
     Dates: start: 20240616, end: 20240628
  14. TRAZODONE [Concomitant]
     Active Substance: TRAZODONE HYDROCHLORIDE
     Route: 048
  15. ESTRADIOL [Concomitant]
     Active Substance: ESTRADIOL
     Route: 062
  16. CLOMETHIAZOLE [Concomitant]
     Active Substance: CLOMETHIAZOLE
     Route: 048
  17. ATORVASTATIN [Concomitant]
     Active Substance: ATORVASTATIN
     Route: 048
  18. RISEDRONATE SODIUM [Concomitant]
     Active Substance: RISEDRONATE SODIUM
     Route: 048
  19. LINACLOTIDE [Concomitant]
     Active Substance: LINACLOTIDE
     Route: 048
  20. CICLOPIROX [Concomitant]
     Active Substance: CICLOPIROX
     Route: 061
  21. AMOXICILLIN [Concomitant]
     Active Substance: AMOXICILLIN
     Route: 048
     Dates: start: 20240524, end: 20240527
  22. AMOXICILLIN [Concomitant]
     Active Substance: AMOXICILLIN
     Route: 048
     Dates: start: 20240519, end: 20240521
  23. CLAVULANIC ACID [Concomitant]
     Active Substance: CLAVULANIC ACID
     Route: 048
     Dates: start: 20240519, end: 20240521

REACTIONS (2)
  - COVID-19 pneumonia [Recovered/Resolved]
  - COVID-19 [Recovered/Resolved]

NARRATIVE: CASE EVENT DATE: 20240511
